FAERS Safety Report 17816458 (Version 8)
Quarter: 2021Q4

REPORT INFORMATION
  Report Type: Spontaneous
  Country: US (occurrence: US)
  Receive Date: 20200522
  Receipt Date: 20211221
  Transmission Date: 20220303
  Serious: No
  Sender: FDA-Public Use
  Company Number: US-PFIZER INC-2020202175

PATIENT
  Age: 55 Year
  Sex: Female

DRUGS (2)
  1. XELJANZ [Suspect]
     Active Substance: TOFACITINIB CITRATE
     Indication: Rheumatoid arthritis
     Dosage: 5 MG, 2X/WEEK
     Route: 048
     Dates: start: 20200405, end: 20210406
  2. DULOXETINE [Concomitant]
     Active Substance: DULOXETINE
     Indication: Arthritis
     Dosage: UNK

REACTIONS (12)
  - Depression [Unknown]
  - Back pain [Unknown]
  - Inflammation [Unknown]
  - Intervertebral disc protrusion [Unknown]
  - Gait disturbance [Unknown]
  - Condition aggravated [Unknown]
  - Pain [Unknown]
  - Wound secretion [Unknown]
  - Procedural pain [Recovering/Resolving]
  - Dry skin [Recovering/Resolving]
  - Oral pruritus [Recovering/Resolving]
  - Pruritus [Recovering/Resolving]
